FAERS Safety Report 7542076-9 (Version None)
Quarter: 2011Q2

REPORT INFORMATION
  Report Type: 
  Country: None (occurrence: None)
  Receive Date: 20110613
  Receipt Date: 20110530
  Transmission Date: 20111010
  Serious: Yes (Other)
  Sender: FDA-Public Use
  Company Number: CA-JNJFOC-20110600842

PATIENT
  Sex: Female
  Weight: 62 kg

DRUGS (2)
  1. REMICADE [Suspect]
     Route: 042
     Dates: start: 20110518
  2. REMICADE [Suspect]
     Indication: PRODUCT USED FOR UNKNOWN INDICATION
     Route: 042
     Dates: start: 20100518, end: 20100828

REACTIONS (2)
  - THERAPEUTIC PROCEDURE [None]
  - DRUG EXPOSURE BEFORE PREGNANCY [None]
